FAERS Safety Report 19906723 (Version 1)
Quarter: 2021Q4

REPORT INFORMATION
  Report Type: Spontaneous
  Country: US (occurrence: US)
  Receive Date: 20211001
  Receipt Date: 20211001
  Transmission Date: 20220303
  Serious: Yes (Other)
  Sender: FDA-Public Use
  Company Number: None

PATIENT
  Age: 57 Year
  Sex: Male
  Weight: 95 kg

DRUGS (1)
  1. REGEN-COV [Suspect]
     Active Substance: CASIRIVIMAB\IMDEVIMAB
     Indication: COVID-19
     Dosage: ?          OTHER FREQUENCY:ONCE;
     Route: 042
     Dates: start: 20210929, end: 20210929

REACTIONS (10)
  - Headache [None]
  - Nausea [None]
  - Myalgia [None]
  - Chills [None]
  - Pyrexia [None]
  - Blood pressure systolic decreased [None]
  - Seizure [None]
  - Syncope [None]
  - Anaphylactic reaction [None]
  - Throat irritation [None]

NARRATIVE: CASE EVENT DATE: 20210929
